FAERS Safety Report 17722415 (Version 4)
Quarter: 2021Q1

REPORT INFORMATION
  Report Type: Spontaneous
  Country: US (occurrence: US)
  Receive Date: 20200429
  Receipt Date: 20210301
  Transmission Date: 20210419
  Serious: No
  Sender: FDA-Public Use
  Company Number: US-PFIZER INC-2020172452

PATIENT
  Age: 58 Year
  Sex: Female

DRUGS (1)
  1. XELJANZ XR [Suspect]
     Active Substance: TOFACITINIB CITRATE
     Indication: RHEUMATOID ARTHRITIS
     Dosage: 11 MG, DAILY
     Route: 048
     Dates: start: 202001

REACTIONS (8)
  - Asthenia [Recovering/Resolving]
  - Coccydynia [Unknown]
  - Fatigue [Recovered/Resolved]
  - Fall [Unknown]
  - Thyroid function test abnormal [Unknown]
  - Feeling hot [Recovered/Resolved]
  - Paraesthesia [Unknown]
  - Sinus disorder [Unknown]

NARRATIVE: CASE EVENT DATE: 202004
